FAERS Safety Report 7962755-9 (Version None)
Quarter: 2011Q4

REPORT INFORMATION
  Report Type: 
  Country: None (occurrence: None)
  Receive Date: 20111207
  Receipt Date: 20111130
  Transmission Date: 20120403
  Serious: Yes (Death, Hospitalization)
  Sender: FDA-Public Use
  Company Number: GB-CELGENEUS-167-C5013-11113538

PATIENT
  Sex: Male
  Weight: 83.8 kg

DRUGS (11)
  1. ZOLADEX [Concomitant]
     Indication: PROSTATE CANCER
     Route: 058
     Dates: start: 20050101, end: 20111129
  2. TAMSULOSIN HCL [Concomitant]
     Indication: NOCTURIA
     Dosage: 400 MICROGRAM
     Route: 048
     Dates: start: 20070101, end: 20111129
  3. LENALIDOMIDE [Suspect]
     Indication: PROSTATE CANCER
     Dosage: 25 MILLIGRAM
     Route: 048
     Dates: start: 20110804, end: 20110817
  4. LANSOPRAZOLE [Concomitant]
     Dosage: 30 MILLIGRAM
     Route: 048
     Dates: start: 20090101, end: 20111129
  5. PREDNISONE TAB [Suspect]
     Dosage: 10 MILLIGRAM
     Route: 048
     Dates: start: 20111101, end: 20111115
  6. ACETAMINOPHEN [Concomitant]
     Indication: ABDOMINAL DISCOMFORT
     Route: 048
     Dates: start: 20110901, end: 20111129
  7. DOCETAXEL [Suspect]
     Indication: PROSTATE CANCER
     Dosage: 120 MILLIGRAM
     Route: 041
     Dates: start: 20110804, end: 20110804
  8. LENALIDOMIDE [Suspect]
     Dosage: 25 MILLIGRAM
     Route: 048
     Dates: start: 20111101, end: 20111114
  9. DOCETAXEL [Suspect]
     Dosage: 120 MILLIGRAM
     Route: 041
     Dates: start: 20111101, end: 20111101
  10. PREDNISONE TAB [Suspect]
     Indication: PROSTATE CANCER
     Dosage: 10 MILLIGRAM
     Route: 048
     Dates: start: 20110804, end: 20110823
  11. RAMIPRIL [Concomitant]
     Indication: HYPERTENSION
     Dosage: 2.5 MILLIGRAM
     Route: 048
     Dates: start: 20080101, end: 20111129

REACTIONS (1)
  - LUNG INFECTION [None]
